FAERS Safety Report 17362191 (Version 4)
Quarter: 2021Q2

REPORT INFORMATION
  Report Type: Other
  Country: FR (occurrence: FR)
  Receive Date: 20200203
  Receipt Date: 20210626
  Transmission Date: 20210716
  Serious: Yes (Other)
  Sender: FDA-Public Use
  Company Number: FR-ROCHE-2534784

PATIENT

DRUGS (1)
  1. SOMATROPIN. [Suspect]
     Active Substance: SOMATROPIN
     Indication: GROWTH HORMONE DEFICIENCY
     Route: 065

REACTIONS (23)
  - Neoplasm [Unknown]
  - Pneumonia [Unknown]
  - Astrocytoma [Unknown]
  - Insulin-like growth factor increased [Unknown]
  - Asthenia [Unknown]
  - Lipodystrophy acquired [Unknown]
  - Craniopharyngioma [Unknown]
  - Headache [Unknown]
  - Medulloblastoma [Unknown]
  - Epiphysiolysis [Unknown]
  - Injection site haematoma [Unknown]
  - Injection site pain [Unknown]
  - Glycosylated haemoglobin increased [Unknown]
  - Injection site atrophy [Unknown]
  - Scoliosis [Unknown]
  - Pain in extremity [Unknown]
  - Adenoidal hypertrophy [Unknown]
  - Injection site haemorrhage [Unknown]
  - Gynaecomastia [Unknown]
  - Lymphadenopathy [Unknown]
  - Insulin-like growth factor decreased [Unknown]
  - Blood insulin increased [Unknown]
  - Arthralgia [Unknown]
